FAERS Safety Report 11344942 (Version 1)
Quarter: 2015Q3

REPORT INFORMATION
  Report Type: Spontaneous
  Country: US (occurrence: None)
  Receive Date: 20150805
  Receipt Date: 20150805
  Transmission Date: 20151125
  Serious: No
  Sender: FDA-Public Use
  Company Number: None

PATIENT
  Age: 53 Year
  Sex: Male
  Weight: 96 kg

DRUGS (1)
  1. INTRON A [Suspect]
     Active Substance: INTERFERON ALFA-2B
     Dosage: 396 MU
     Dates: end: 20141107

REACTIONS (4)
  - Eschar [None]
  - Abdominal pain lower [None]
  - Pain [None]
  - Skin lesion [None]

NARRATIVE: CASE EVENT DATE: 20141010
